FAERS Safety Report 6820444-8 (Version None)
Quarter: 2010Q3

REPORT INFORMATION
  Report Type: 
  Country: None (occurrence: None)
  Receive Date: 20100707
  Receipt Date: 20100702
  Transmission Date: 20110219
  Serious: Yes (Hospitalization)
  Sender: FDA-Public Use
  Company Number: SE-PFIZER INC-2010048197

PATIENT
  Age: 56 Year
  Sex: Female
  Weight: 99 kg

DRUGS (12)
  1. CP-690,550 [Suspect]
     Indication: RHEUMATOID ARTHRITIS
     Dosage: 10 MG, 2X/DAY
     Route: 048
     Dates: start: 20091214, end: 20100401
  2. CP-690,550 [Suspect]
     Dosage: 10 MG, 2X/DAY
     Route: 048
     Dates: start: 20100415
  3. OMEPRAZOLE [Suspect]
     Indication: PROPHYLAXIS AGAINST GASTROINTESTINAL ULCER
     Dosage: 20 MG, 1X/DAY
     Route: 048
     Dates: start: 20060101
  4. CELEBRA [Concomitant]
     Indication: RHEUMATOID ARTHRITIS
     Dosage: 100 MG, 1X/DAY
     Route: 048
     Dates: start: 20070101
  5. METHOTREXATE [Concomitant]
     Indication: RHEUMATOID ARTHRITIS
     Dosage: 17.5 MG, WEEKLY
     Route: 048
     Dates: start: 20060823
  6. FOLACIN [Concomitant]
     Indication: PROPHYLAXIS
     Dosage: 5 MG TWICE A WEEK
     Route: 048
     Dates: start: 20060823
  7. DOXYCYCLINE [Concomitant]
     Indication: RESPIRATORY TRACT INFECTION
     Dosage: UNK
     Dates: start: 20100322, end: 20100330
  8. LEVOTHYROXINE SODIUM [Concomitant]
     Indication: HYPOTHYROIDISM
     Dosage: 100 UG, 2X/DAY
     Route: 048
     Dates: start: 20030101
  9. SYMBICORT [Concomitant]
     Indication: ASTHMA
     Dosage: 320 UG/9 UG Q.D.
     Route: 055
     Dates: start: 20060101
  10. ATACAND [Concomitant]
     Indication: HYPERTENSION
     Dosage: 4 MG, 1X/DAY
     Route: 048
  11. FELODIPINE [Concomitant]
     Indication: HYPERTENSION
     Dosage: UP TO 10 MG
     Route: 048
  12. VISCOTEARS [Concomitant]
     Indication: DRY EYE
     Dosage: 2 MG/G Q.D.
     Route: 047
     Dates: start: 20060101

REACTIONS (1)
  - AMNESIA [None]
